FAERS Safety Report 12724956 (Version 1)
Quarter: 2016Q3

REPORT INFORMATION
  Report Type: Spontaneous
  Country: NL (occurrence: NL)
  Receive Date: 20160908
  Receipt Date: 20160908
  Transmission Date: 20161109
  Serious: Yes (Life-Threatening, Hospitalization)
  Sender: FDA-Public Use
  Company Number: PHHY2016NL119954

PATIENT
  Age: 11 Month
  Sex: Female
  Weight: 9 kg

DRUGS (1)
  1. SALBUTAMOL SANDOZ [Suspect]
     Active Substance: ALBUTEROL
     Indication: DYSPNOEA
     Dosage: 1 DF, TID
     Route: 055
     Dates: start: 2016

REACTIONS (3)
  - Therapeutic response decreased [Recovered/Resolved]
  - Product quality issue [Recovered/Resolved]
  - Dyspnoea [Recovered/Resolved]

NARRATIVE: CASE EVENT DATE: 20160717
